FAERS Safety Report 6754059-7 (Version None)
Quarter: 2010Q2

REPORT INFORMATION
  Report Type: 
  Country: None (occurrence: None)
  Receive Date: 20100603
  Receipt Date: 20100524
  Transmission Date: 20101027
  Serious: Yes (Death)
  Sender: FDA-Public Use
  Company Number: JP-JNJFOC-20100510149

PATIENT
  Sex: Female
  Weight: 68 kg

DRUGS (7)
  1. REMICADE [Suspect]
     Indication: RHEUMATOID ARTHRITIS
     Route: 042
  2. REMICADE [Suspect]
     Route: 042
  3. REMICADE [Suspect]
     Dosage: 9 INFUSIONS ON UNSPECIFIED DATES
     Route: 042
  4. PREDNISOLONE [Concomitant]
     Route: 048
  5. RHEUMATREX [Concomitant]
     Indication: RHEUMATOID ARTHRITIS
     Dosage: DOSE= 8-10 MG/WEEK
     Route: 048
  6. VOLTAREN [Concomitant]
     Route: 048
  7. ACTONEL [Concomitant]
     Route: 048

REACTIONS (2)
  - GASTROENTERITIS [None]
  - SUBARACHNOID HAEMORRHAGE [None]
